FAERS Safety Report 8074599-0 (Version None)
Quarter: 2012Q1

REPORT INFORMATION
  Report Type: 
  Country: None (occurrence: None)
  Receive Date: 20120126
  Receipt Date: 20120118
  Transmission Date: 20120608
  Serious: Yes (Hospitalization)
  Sender: FDA-Public Use
  Company Number: US-PFIZER INC-2011312189

PATIENT
  Sex: Female
  Weight: 74 kg

DRUGS (4)
  1. TRASTUZUMAB [Suspect]
     Indication: BREAST CANCER METASTATIC
     Dosage: 140 MG, EVERY WEEK X3
     Route: 042
     Dates: start: 20111215, end: 20111222
  2. PACLITAXEL [Suspect]
     Indication: BREAST CANCER METASTATIC
     Dosage: 135 MG, EVERY WEEK X3
     Route: 042
     Dates: start: 20111215, end: 20111222
  3. IMODIUM [Concomitant]
     Indication: PROPHYLAXIS
     Dosage: UNK
     Dates: start: 20111215
  4. NERATINIB [Suspect]
     Indication: BREAST CANCER METASTATIC
     Dosage: 240 MG, 1X/DAY
     Route: 048
     Dates: start: 20111215, end: 20111222

REACTIONS (8)
  - ANAEMIA [None]
  - HYPOKALAEMIA [None]
  - DEHYDRATION [None]
  - DIARRHOEA [None]
  - NEUTROPENIA [None]
  - SKIN ULCER [None]
  - MUCOSAL INFLAMMATION [None]
  - THROMBOCYTOPENIA [None]
